FAERS Safety Report 9282730 (Version 1)
Quarter: 2013Q2

REPORT INFORMATION
  Report Type: Spontaneous
  Country: US (occurrence: None)
  Receive Date: 20130506
  Receipt Date: 20130506
  Transmission Date: 20140414
  Serious: Yes (Hospitalization, Other)
  Sender: FDA-Public Use
  Company Number: 2013HINLIT0083

PATIENT
  Age: 52 Year
  Sex: Male

DRUGS (5)
  1. HYDRALAZINE [Suspect]
     Indication: HYPERTENSION
  2. CLONIDINE [Suspect]
     Indication: HYPERTENSION
  3. AMLODIPINE [Suspect]
     Indication: PRODUCT USED FOR UNKNOWN INDICATION
  4. LACTULOSE [Suspect]
     Indication: CONSTIPATION
  5. FERROUS SULFIDE [Suspect]
     Indication: PRODUCT USED FOR UNKNOWN INDICATION

REACTIONS (3)
  - Gastroenteritis pseudomonas [None]
  - Ileus [None]
  - Normochromic normocytic anaemia [None]
